FAERS Safety Report 6000250-7 (Version None)
Quarter: 2008Q4

REPORT INFORMATION
  Report Type: 
  Country: None (occurrence: None)
  Receive Date: 20081211
  Receipt Date: 20081203
  Transmission Date: 20090506
  Serious: Yes (Hospitalization)
  Sender: FDA-Public Use
  Company Number: 08P-114-0484518-00

PATIENT
  Age: 9 Month
  Sex: Male

DRUGS (1)
  1. SYNAGIS [Suspect]
     Indication: ANTIVIRAL PROPHYLAXIS
     Dosage: 150 MG
     Route: 030
     Dates: start: 20081023

REACTIONS (2)
  - NAUSEA [None]
  - VOMITING [None]
